FAERS Safety Report 23043160 (Version 1)
Quarter: 2023Q4

REPORT INFORMATION
  Report Type: Spontaneous
  Country: US (occurrence: US)
  Receive Date: 20231009
  Receipt Date: 20231009
  Transmission Date: 20240110
  Serious: Yes (Other)
  Sender: FDA-Public Use
  Company Number: US-BRISTOL-MYERS SQUIBB COMPANY-2023-142462

PATIENT
  Age: 70 Year
  Sex: Female

DRUGS (2)
  1. POMALYST [Suspect]
     Active Substance: POMALIDOMIDE
     Indication: Plasma cell myeloma
     Dosage: D1-21 EVERY 28 DAYS
     Route: 048
     Dates: start: 20220525
  2. POMALYST [Suspect]
     Active Substance: POMALIDOMIDE
     Dosage: D1-21 EVERY 28 DAYS
     Route: 048
     Dates: start: 20220502, end: 20230809

REACTIONS (2)
  - Plasma cell myeloma [Not Recovered/Not Resolved]
  - Laboratory test abnormal [Not Recovered/Not Resolved]
